FAERS Safety Report 15785960 (Version 2)
Quarter: 2019Q1

REPORT INFORMATION
  Report Type: Spontaneous
  Country: US (occurrence: US)
  Receive Date: 20190103
  Receipt Date: 20190204
  Transmission Date: 20190417
  Serious: No
  Sender: FDA-Public Use
  Company Number: US-SA-2018SA397834

PATIENT
  Age: 54 Year
  Sex: Male

DRUGS (3)
  1. CERAVE ITCH RELIEF MOISTURIZING [Concomitant]
     Active Substance: PRAMOXINE HYDROCHLORIDE
  2. DUPIXENT [Suspect]
     Active Substance: DUPILUMAB
     Dosage: 300 MG, QOW
     Route: 058
     Dates: start: 20181226
  3. DUPIXENT [Suspect]
     Active Substance: DUPILUMAB
     Indication: DERMATITIS ATOPIC
     Dosage: 300 MG, QOW
     Route: 058
     Dates: start: 201805, end: 201807

REACTIONS (6)
  - Therapeutic response unexpected [Unknown]
  - Dry skin [Unknown]
  - Blister [Unknown]
  - Erythema [Unknown]
  - Photosensitivity reaction [Unknown]
  - Skin mass [Unknown]

NARRATIVE: CASE EVENT DATE: 2018
